FAERS Safety Report 17927432 (Version 1)
Quarter: 2020Q2

REPORT INFORMATION
  Report Type: Spontaneous
  Country: US (occurrence: US)
  Receive Date: 20200623
  Receipt Date: 20200623
  Transmission Date: 20200714
  Serious: No
  Sender: FDA-Public Use
  Company Number: US-GLOBAL BLOOD THERAPEUTICS INC-US-GBT-20-00868

PATIENT
  Age: 38 Year
  Sex: Male

DRUGS (2)
  1. HYDROMORPHONE [Concomitant]
     Active Substance: HYDROMORPHONE
     Indication: PAIN
     Route: 048
  2. OXBRYTA [Suspect]
     Active Substance: VOXELOTOR
     Indication: PRODUCT USED FOR UNKNOWN INDICATION
     Route: 048
     Dates: start: 20200414

REACTIONS (1)
  - Swelling face [Unknown]

NARRATIVE: CASE EVENT DATE: 20200422
